FAERS Safety Report 4505336-1 (Version None)
Quarter: 2004Q4

REPORT INFORMATION
  Report Type: 
  Country: None (occurrence: None)
  Receive Date: 20041116
  Receipt Date: 20041103
  Transmission Date: 20050328
  Serious: Yes (Hospitalization)
  Sender: FDA-Public Use
  Company Number: 2004087475

PATIENT
  Age: 74 Year
  Sex: Male

DRUGS (1)
  1. AMPICILLIN/SULBACTAM (SULBACTAM, AMPICILLIN) [Suspect]
     Indication: PHARYNGOLARYNGEAL PAIN
     Dosage: 1500 MG (750 MG , 2 IN 1 D)
     Dates: start: 20030301

REACTIONS (3)
  - CHOLESTASIS [None]
  - HEPATITIS TOXIC [None]
  - LYMPHADENOPATHY [None]
